FAERS Safety Report 24467045 (Version 1)
Quarter: 2024Q4

REPORT INFORMATION
  Report Type: Report from Study
  Country: US (occurrence: US)
  Receive Date: 20241018
  Receipt Date: 20241018
  Transmission Date: 20250115
  Serious: No
  Sender: ROCHE
  Company Number: US-ROCHE-3557657

PATIENT
  Age: 39 Year
  Sex: Female
  Weight: 91.53 kg

DRUGS (8)
  1. XOLAIR [Suspect]
     Active Substance: OMALIZUMAB
     Indication: Asthma
     Dosage: LAST INJECTION DATE; 18/NOV/2022
     Route: 058
     Dates: start: 202111
  2. XOLAIR [Suspect]
     Active Substance: OMALIZUMAB
  3. ARIPIPRAZOLE [Concomitant]
     Active Substance: ARIPIPRAZOLE
  4. GABAPENTIN [Concomitant]
     Active Substance: GABAPENTIN
  5. METFORMIN [Concomitant]
     Active Substance: METFORMIN HYDROCHLORIDE
  6. TOPIRAMATE [Concomitant]
     Active Substance: TOPIRAMATE
  7. TRAZODONE [Concomitant]
     Active Substance: TRAZODONE HYDROCHLORIDE
  8. BUPROPION [Concomitant]
     Active Substance: BUPROPION

REACTIONS (2)
  - Off label use [Unknown]
  - No adverse event [Unknown]
